FAERS Safety Report 14551677 (Version 1)
Quarter: 2018Q1

REPORT INFORMATION
  Report Type: Spontaneous
  Country: DE (occurrence: DE)
  Receive Date: 20180220
  Receipt Date: 20180220
  Transmission Date: 20180509
  Serious: Yes (Hospitalization)
  Sender: FDA-Public Use
  Company Number: DE-SUN PHARMACEUTICAL INDUSTRIES LTD-2018RR-163726

PATIENT
  Age: 69 Year
  Sex: Female
  Weight: 85 kg

DRUGS (6)
  1. NITRANGIN [Concomitant]
     Indication: PRODUCT USED FOR UNKNOWN INDICATION
     Dosage: ANWENDUNG BEI BEDARF ()
     Route: 065
  2. SALBUTAMOL [Concomitant]
     Active Substance: ALBUTEROL
     Indication: BRONCHITIS
     Dosage: EINNAHME BEI BEDARF
     Route: 065
  3. RAMILICH 5 MG TABLETTEN [Concomitant]
     Active Substance: RAMIPRIL
     Indication: HYPERTENSION
     Dosage: 5 MG, BID
     Route: 065
     Dates: start: 2017
  4. LETROZOLE. [Suspect]
     Active Substance: LETROZOLE
     Indication: METASTASES TO LUNG
     Dosage: 2.5 MG, DAILY
     Route: 065
     Dates: start: 201609, end: 20180131
  5. METOHEXAL 95MG [Concomitant]
     Indication: HYPERTENSION
     Dosage: 47.5 MG, BID, EINNAHME SEIT 8 JAHREN
     Route: 048
  6. ALLOPURINOL. [Concomitant]
     Active Substance: ALLOPURINOL
     Indication: GOUT
     Dosage: 300 MG, DAILY
     Route: 065
     Dates: start: 2017

REACTIONS (4)
  - Palpitations [Unknown]
  - Tremor [Unknown]
  - Blood pressure increased [Unknown]
  - Chills [Unknown]

NARRATIVE: CASE EVENT DATE: 20180131
